FAERS Safety Report 14950692 (Version 2)
Quarter: 2021Q2

REPORT INFORMATION
  Report Type: Spontaneous
  Country: GB (occurrence: GB)
  Receive Date: 20180530
  Receipt Date: 20210623
  Transmission Date: 20210716
  Serious: Yes (Hospitalization, Other)
  Sender: FDA-Public Use
  Company Number: PHHY2018GB070105

PATIENT
  Age: 43 Year
  Sex: Female

DRUGS (1)
  1. RIFAMPICIN [Suspect]
     Active Substance: RIFAMPIN
     Indication: CHOLESTATIC PRURITUS
     Dosage: 300 MG, QD
     Route: 065

REACTIONS (8)
  - International normalised ratio increased [Recovered/Resolved]
  - Drug-induced liver injury [Recovered/Resolved]
  - Off label use [Recovered/Resolved]
  - Alanine aminotransferase increased [Recovered/Resolved]
  - Blood alkaline phosphatase increased [Recovered/Resolved]
  - Hepatic necrosis [Recovered/Resolved]
  - Product use in unapproved indication [Unknown]
  - Blood bilirubin increased [Recovered/Resolved]
